FAERS Safety Report 6221636-1 (Version None)
Quarter: 2009Q2

REPORT INFORMATION
  Report Type: 
  Country: None (occurrence: None)
  Receive Date: 20090608
  Receipt Date: 20090602
  Transmission Date: 20091009
  Serious: Yes (Hospitalization, Other)
  Sender: FDA-Public Use
  Company Number: FR-WYE-G03774009

PATIENT
  Age: 4 Year
  Sex: Male

DRUGS (2)
  1. ADVIL [Suspect]
     Indication: NASOPHARYNGITIS
     Dosage: 1 DOSE 3X PER 1 DAY; ORAL
     Route: 048
     Dates: start: 20090223, end: 20090225
  2. RHINOFLUIMUCIL (ACETYLCYSTEINE/BENZALKONIUM CHLORIDE/TUAMINOHEPTANE, , [Suspect]
     Indication: NASOPHARYNGITIS
     Dosage: NASAL
     Route: 045
     Dates: start: 20090223, end: 20090225

REACTIONS (5)
  - BACTERIAL INFECTION [None]
  - CONDITION AGGRAVATED [None]
  - HAEMOGLOBIN DECREASED [None]
  - LYMPHADENITIS [None]
  - PLATELET COUNT INCREASED [None]
